FAERS Safety Report 4384514-9 (Version None)
Quarter: 2004Q2

REPORT INFORMATION
  Report Type: 
  Country: None (occurrence: None)
  Receive Date: 20040610
  Receipt Date: 20040302
  Transmission Date: 20050107
  Serious: No
  Sender: FDA-Public Use
  Company Number: US-JNJFOC-20040202726

PATIENT
  Age: 85 Year
  Sex: Male
  Weight: 58.514 kg

DRUGS (2)
  1. NATRECOR [Suspect]
     Indication: DRUG USE FOR UNKNOWN INDICATION
     Dosage: DOSE WAS REDUCED BY 30%
  2. MAGNESIUM SULFATE [Suspect]
     Indication: MINERAL DEFICIENCY
     Dosage: 2 G, INTRAVENOUS
     Route: 042

REACTIONS (3)
  - BLOOD PRESSURE DECREASED [None]
  - DIZZINESS [None]
  - FATIGUE [None]
